FAERS Safety Report 9594028 (Version 3)
Quarter: 2014Q1

REPORT INFORMATION
  Report Type: Spontaneous
  Country: US (occurrence: US)
  Receive Date: 20131004
  Receipt Date: 20140117
  Transmission Date: 20141002
  Serious: Yes (Hospitalization, Other)
  Sender: FDA-Public Use
  Company Number: US-ELI_LILLY_AND_COMPANY-US201309009333

PATIENT
  Age: 37 Year
  Sex: Female

DRUGS (1)
  1. CIALIS [Suspect]
     Indication: PULMONARY ARTERIAL HYPERTENSION
     Dosage: 40 MG, QD

REACTIONS (3)
  - Retinal artery occlusion [Unknown]
  - Acute chest syndrome [Unknown]
  - Sickle cell anaemia with crisis [Unknown]
